FAERS Safety Report 10074265 (Version 1)
Quarter: 2014Q2

REPORT INFORMATION
  Report Type: Spontaneous
  Country: US (occurrence: US)
  Receive Date: 20140411
  Receipt Date: 20140411
  Transmission Date: 20141212
  Serious: No
  Sender: FDA-Public Use
  Company Number: US-SA-2014SA013751

PATIENT
  Age: 4 Year
  Sex: Female

DRUGS (1)
  1. ALLEGRA [Suspect]
     Dosage: FREQUENCY: ODT
     Route: 048
     Dates: start: 20140130

REACTIONS (1)
  - Extra dose administered [Unknown]
